FAERS Safety Report 9016304 (Version 2)
Quarter: 2013Q1

REPORT INFORMATION
  Report Type: Spontaneous
  Country: BR (occurrence: BR)
  Receive Date: 20130116
  Receipt Date: 20130214
  Transmission Date: 20140127
  Serious: Yes (Other)
  Sender: FDA-Public Use
  Company Number: PHHY2012BR114591

PATIENT
  Age: 41 Year
  Sex: Female

DRUGS (5)
  1. GILENYA [Suspect]
     Indication: MULTIPLE SCLEROSIS
     Route: 048
  2. GLUCOSAMINE SULFATE [Concomitant]
     Dosage: UNK
  3. PURAN T4 [Concomitant]
     Dates: start: 201112
  4. TYLENOL [Concomitant]
     Dosage: UNK
  5. VIT D [Concomitant]
     Dates: start: 201211

REACTIONS (4)
  - Brain injury [Recovering/Resolving]
  - Central nervous system lesion [Recovering/Resolving]
  - Heart rate irregular [Recovered/Resolved]
  - Alopecia [Not Recovered/Not Resolved]
